FAERS Safety Report 9735467 (Version 1)
Quarter: 2013Q4

REPORT INFORMATION
  Report Type: Spontaneous
  Country: US (occurrence: US)
  Receive Date: 20131206
  Receipt Date: 20131206
  Transmission Date: 20140711
  Serious: No
  Sender: FDA-Public Use
  Company Number: US-GILEAD-2009-0023221

PATIENT
  Sex: Male
  Weight: 127.1 kg

DRUGS (8)
  1. LETAIRIS [Suspect]
     Indication: PULMONARY ARTERIAL HYPERTENSION
     Route: 048
     Dates: start: 20090506
  2. OXYGEN [Concomitant]
  3. METOPROLOL [Concomitant]
  4. LIPITOR [Concomitant]
  5. ENALAPRIL-HCTZ [Concomitant]
  6. ASPIRIN [Concomitant]
  7. QUININE SULFATE [Concomitant]
  8. VITAMIN C [Concomitant]

REACTIONS (1)
  - Ageusia [Unknown]
